FAERS Safety Report 9911666 (Version 1)
Quarter: 2014Q1

REPORT INFORMATION
  Report Type: Spontaneous
  Country: US (occurrence: US)
  Receive Date: 20140219
  Receipt Date: 20140219
  Transmission Date: 20141002
  Serious: No
  Sender: FDA-Public Use
  Company Number: US-GILEAD-2014-0094808

PATIENT
  Sex: Female

DRUGS (3)
  1. LETAIRIS [Suspect]
     Indication: PRODUCT USED FOR UNKNOWN INDICATION
     Dosage: UNK
     Route: 065
     Dates: start: 201102
  2. LETAIRIS [Suspect]
     Dosage: 2.5 MG, QD
     Route: 065
  3. ADCIRCA [Concomitant]

REACTIONS (4)
  - Hypotension [Unknown]
  - Chills [Unknown]
  - Headache [Unknown]
  - Nasal congestion [Unknown]
